FAERS Safety Report 10053044 (Version 1)
Quarter: 2014Q2

REPORT INFORMATION
  Report Type: Spontaneous
  Country: CH (occurrence: CH)
  Receive Date: 20140402
  Receipt Date: 20140402
  Transmission Date: 20141212
  Serious: Yes (Life-Threatening, Other)
  Sender: FDA-Public Use
  Company Number: CH-TEVA-471661ISR

PATIENT
  Age: 71 Year
  Sex: Female

DRUGS (17)
  1. FLUDARABINE [Suspect]
     Indication: CHRONIC LYMPHOCYTIC LEUKAEMIA
     Dosage: 4 CYCLES
     Route: 041
     Dates: start: 200410, end: 200501
  2. FLUDARABINE [Suspect]
     Dosage: 4 CYCLES
     Route: 041
     Dates: start: 20130828, end: 20131127
  3. ONCOVIN [Suspect]
     Indication: CHRONIC LYMPHOCYTIC LEUKAEMIA
     Dosage: 6 CYCLES
     Route: 041
     Dates: start: 200801, end: 200805
  4. REDIMUNE [Suspect]
     Indication: IMMUNOGLOBULINS DECREASED
     Route: 041
     Dates: start: 200410, end: 200501
  5. REDIMUNE [Suspect]
     Route: 041
     Dates: start: 200602, end: 200808
  6. PRIVIGEN [Suspect]
     Indication: IMMUNOGLOBULINS DECREASED
     Route: 041
     Dates: start: 200901, end: 201111
  7. INTRATECT [Suspect]
     Indication: IMMUNOGLOBULINS DECREASED
     Route: 041
     Dates: start: 201112, end: 201312
  8. PREDNISON [Suspect]
     Indication: CHRONIC LYMPHOCYTIC LEUKAEMIA
     Route: 048
     Dates: start: 200303, end: 200304
  9. PREDNISON [Suspect]
     Route: 048
     Dates: start: 200402, end: 200404
  10. PREDNISON [Suspect]
     Dosage: 6 CYCLES
     Route: 048
     Dates: start: 200801, end: 200805
  11. MABTHERA [Suspect]
     Indication: CHRONIC LYMPHOCYTIC LEUKAEMIA
     Dosage: 6 CYCLES
     Route: 041
     Dates: start: 200801, end: 200805
  12. MABTHERA [Suspect]
     Dosage: 4 CYCLES
     Route: 041
     Dates: start: 20130828, end: 20131127
  13. CYCLOPHOSPHAMID [Suspect]
     Indication: CHRONIC LYMPHOCYTIC LEUKAEMIA
     Dosage: 6 CYCLES
     Route: 065
     Dates: start: 200801, end: 200805
  14. CYCLOPHOSPHAMID [Suspect]
     Dosage: 4 CYCLES
     Route: 065
     Dates: start: 20130828, end: 20131127
  15. RIBOMUSTIN [Suspect]
     Indication: CHRONIC LYMPHOCYTIC LEUKAEMIA
     Dosage: 6 CYCLES
     Route: 041
     Dates: start: 20120426, end: 20120925
  16. LEUKERAN [Suspect]
     Indication: CHRONIC LYMPHOCYTIC LEUKAEMIA
     Route: 048
     Dates: start: 200303, end: 200304
  17. LEUKERAN [Suspect]
     Route: 048
     Dates: start: 200402, end: 200404

REACTIONS (8)
  - Creutzfeldt-Jakob disease [Not Recovered/Not Resolved]
  - Dysacusis [Not Recovered/Not Resolved]
  - Visual impairment [Not Recovered/Not Resolved]
  - Optic neuritis [Not Recovered/Not Resolved]
  - Blindness cortical [Not Recovered/Not Resolved]
  - Amnestic disorder [Not Recovered/Not Resolved]
  - Cerebellar syndrome [Not Recovered/Not Resolved]
  - Dementia [Not Recovered/Not Resolved]
